FAERS Safety Report 7978880-2 (Version None)
Quarter: 2011Q4

REPORT INFORMATION
  Report Type: 
  Country: None (occurrence: None)
  Receive Date: 20111214
  Receipt Date: 20111206
  Transmission Date: 20120403
  Serious: Yes (Other)
  Sender: FDA-Public Use
  Company Number: US-RB-031085-11

PATIENT
  Age: 60 Year
  Sex: Female

DRUGS (4)
  1. DIAVAN [Concomitant]
     Indication: HYPERTENSION
  2. BACTRIM [Concomitant]
     Indication: URINARY TRACT INFECTION
     Route: 048
  3. MUCINEX DM [Suspect]
     Dosage: YESTERDAY 1 1200MG TAB
     Route: 048
     Dates: start: 20111201
  4. MUCINEX DM [Suspect]
     Indication: PRODUCT USED FOR UNKNOWN INDICATION
     Dosage: BREAKS THE PILLS IN HALF
     Route: 048

REACTIONS (7)
  - FEELING JITTERY [None]
  - BLOOD PRESSURE INCREASED [None]
  - INCREASED UPPER AIRWAY SECRETION [None]
  - NERVOUSNESS [None]
  - WRONG TECHNIQUE IN DRUG USAGE PROCESS [None]
  - HEADACHE [None]
  - NAUSEA [None]
